FAERS Safety Report 7780885-1 (Version None)
Quarter: 2011Q3

REPORT INFORMATION
  Report Type: 
  Country: None (occurrence: None)
  Receive Date: 20110927
  Receipt Date: 20110919
  Transmission Date: 20111222
  Serious: Yes (Hospitalization)
  Sender: FDA-Public Use
  Company Number: SE-SANOFI-AVENTIS-2011SA061023

PATIENT
  Age: 77 Year
  Sex: Male

DRUGS (9)
  1. OMEPRAZOLE [Concomitant]
     Route: 065
  2. ASPIRIN [Concomitant]
     Route: 065
  3. IBUPROFEN [Suspect]
     Route: 065
     Dates: end: 20110804
  4. METOPROLOL SUCCINATE [Concomitant]
     Route: 065
  5. PROPAVAN [Suspect]
     Route: 065
     Dates: end: 20110804
  6. ZOLPIDEM [Suspect]
     Route: 065
     Dates: end: 20110804
  7. SALURES [Suspect]
     Route: 065
     Dates: end: 20110804
  8. RAMIPRIL [Suspect]
     Route: 065
  9. ADALAT [Concomitant]
     Route: 065

REACTIONS (3)
  - BLOOD CREATININE INCREASED [None]
  - HYPONATRAEMIA [None]
  - CONFUSIONAL STATE [None]
